FAERS Safety Report 8759041 (Version 1)
Quarter: 2012Q4

REPORT INFORMATION
  Report Type: 
  Country: US (occurrence: US)
  Receive Date: 20120829
  Receipt Date: 20120829
  Transmission Date: 20130627
  Serious: No
  Sender: FDA-Public Use
  Company Number: US-BIOGENIDEC-2012BI031602

PATIENT
  Age: 47 Year
  Sex: Male

DRUGS (3)
  1. AVONEX [Suspect]
     Indication: MULTIPLE SCLEROSIS
     Route: 030
     Dates: start: 20120117, end: 20120730
  2. AVONEX [Suspect]
     Indication: MULTIPLE SCLEROSIS
     Route: 030
     Dates: start: 20120806
  3. TYLENOL [Concomitant]
     Indication: PREMEDICATION
     Dates: start: 201201

REACTIONS (3)
  - Muscle spasms [Recovered/Resolved]
  - Underdose [Recovered/Resolved]
  - Influenza like illness [Recovered/Resolved]
